FAERS Safety Report 11141260 (Version 1)
Quarter: 2015Q2

REPORT INFORMATION
  Report Type: Spontaneous
  Country: US (occurrence: None)
  Receive Date: 20150526
  Receipt Date: 20150526
  Transmission Date: 20150821
  Serious: Yes (Disabling)
  Sender: FDA-Public Use
  Company Number: None

PATIENT
  Age: 73 Year
  Sex: Male
  Weight: 96.62 kg

DRUGS (28)
  1. VITAMIN B12 [Concomitant]
     Active Substance: CYANOCOBALAMIN
  2. XANAX [Concomitant]
     Active Substance: ALPRAZOLAM
  3. DEXILANT [Suspect]
     Active Substance: DEXLANSOPRAZOLE
     Indication: GASTROINTESTINAL DISORDER
     Route: 048
     Dates: start: 20150509, end: 20150510
  4. L-ARGININE [Concomitant]
     Active Substance: ARGININE
  5. ZINC [Concomitant]
     Active Substance: ZINC\ZINC CHLORIDE
  6. SAW PALMETTO [Concomitant]
     Active Substance: SAW PALMETTO
  7. NITROSTAT [Concomitant]
     Active Substance: NITROGLYCERIN
  8. CARDIZEM [Concomitant]
     Active Substance: DILTIAZEM HYDROCHLORIDE
  9. VITAMIN C [Concomitant]
     Active Substance: ASCORBIC ACID
  10. GAVISON [Concomitant]
  11. PENTASA [Concomitant]
     Active Substance: MESALAMINE
  12. WARFARIN [Concomitant]
     Active Substance: WARFARIN
  13. COQ10 [Concomitant]
     Active Substance: UBIDECARENONE
  14. COD LIVER OIL [Concomitant]
     Active Substance: COD LIVER OIL
  15. PANTOPRAZOLE [Concomitant]
     Active Substance: PANTOPRAZOLE SODIUM
  16. VITAMIN D [Concomitant]
     Active Substance: CHOLECALCIFEROL
  17. POTASSIUM [Concomitant]
     Active Substance: POTASSIUM
  18. LYSINE [Concomitant]
     Active Substance: LYSINE
  19. CALCIUM [Concomitant]
     Active Substance: CALCIUM
  20. DEXILANT [Suspect]
     Active Substance: DEXLANSOPRAZOLE
     Indication: GASTROOESOPHAGEAL REFLUX DISEASE
     Route: 048
     Dates: start: 20150509, end: 20150510
  21. ATENOLOL. [Concomitant]
     Active Substance: ATENOLOL
  22. FISH OIL [Concomitant]
     Active Substance: FISH OIL
  23. DEXILANT [Suspect]
     Active Substance: DEXLANSOPRAZOLE
     Indication: ABDOMINAL DISTENSION
     Route: 048
     Dates: start: 20150509, end: 20150510
  24. DEXILANT [Suspect]
     Active Substance: DEXLANSOPRAZOLE
     Indication: FLATULENCE
     Route: 048
     Dates: start: 20150509, end: 20150510
  25. FUROSEMIDE. [Concomitant]
     Active Substance: FUROSEMIDE
  26. AMIODARONE [Concomitant]
     Active Substance: AMIODARONE
  27. GLUCOSAMINE CHONDROITIN [Concomitant]
     Active Substance: CHONDROITIN SULFATE (BOVINE)\GLUCOSAMINE HYDROCHLORIDE
  28. GAS X PILLS [Concomitant]

REACTIONS (5)
  - Rash macular [None]
  - Rash [None]
  - Dizziness [None]
  - Feeling abnormal [None]
  - Tongue coated [None]

NARRATIVE: CASE EVENT DATE: 20150516
